FAERS Safety Report 9306302 (Version 1)
Quarter: 2013Q2

REPORT INFORMATION
  Report Type: Spontaneous
  Country: CA (occurrence: CA)
  Receive Date: 20130523
  Receipt Date: 20130523
  Transmission Date: 20140414
  Serious: Yes (Other)
  Sender: FDA-Public Use
  Company Number: CA-BRISTOL-MYERS SQUIBB COMPANY-18900308

PATIENT
  Age: 63 Year
  Sex: Female

DRUGS (1)
  1. SPRYCEL [Suspect]
     Indication: CHRONIC MYELOID LEUKAEMIA
     Route: 048
     Dates: start: 20130314, end: 20130428

REACTIONS (4)
  - Fluid retention [Not Recovered/Not Resolved]
  - Cardiac disorder [Unknown]
  - Lung disorder [Unknown]
  - Renal disorder [Unknown]
